FAERS Safety Report 19967316 (Version 2)
Quarter: 2021Q4

REPORT INFORMATION
  Report Type: Spontaneous
  Country: US (occurrence: US)
  Receive Date: 20211019
  Receipt Date: 20211022
  Transmission Date: 20220303
  Serious: Yes (Death)
  Sender: FDA-Public Use
  Company Number: US-ROCHE-2937057

PATIENT
  Age: 96 Year
  Sex: Male
  Weight: 65.83 kg

DRUGS (3)
  1. ERIVEDGE [Suspect]
     Active Substance: VISMODEGIB
     Indication: Basal cell carcinoma
     Route: 048
     Dates: start: 20210305, end: 20211013
  2. LASIX [Concomitant]
     Active Substance: FUROSEMIDE
  3. GLUCOTROL [Concomitant]
     Active Substance: GLIPIZIDE
     Indication: Diabetes mellitus

REACTIONS (1)
  - Death [Fatal]

NARRATIVE: CASE EVENT DATE: 20211013
